FAERS Safety Report 10667240 (Version 2)
Quarter: 2015Q1

REPORT INFORMATION
  Report Type: Spontaneous
  Country: US (occurrence: None)
  Receive Date: 20141218
  Receipt Date: 20150225
  Transmission Date: 20150720
  Serious: Yes (Other)
  Sender: FDA-Public Use
  Company Number: DSC201412-000019

PATIENT
  Age: 30 Hour
  Sex: Female
  Weight: .88 kg

DRUGS (3)
  1. SURFAXIN [Suspect]
     Active Substance: 1-PALMITOYL-2-OLEOYL-SN-GLYCERO-3-(PHOSPHO-RAC-(1-GLYCEROL)), SODIUM SALT\COLFOSCERIL PALMITATE\PALMITIC ACID\SINAPULTIDE
     Indication: NEONATAL RESPIRATORY DISTRESS SYNDROME
     Dosage: (TOTAL 6 ML IN 4 ALIQUOTS)
     Dates: start: 20141127, end: 20141128
  2. CUROSURF [Concomitant]
     Active Substance: PORACTANT ALFA
  3. INDOCIN [Concomitant]
     Active Substance: INDOMETHACIN\INDOMETHACIN SODIUM

REACTIONS (3)
  - Reflux laryngitis [None]
  - Pulmonary haemorrhage [None]
  - Neonatal hypoxia [None]

NARRATIVE: CASE EVENT DATE: 20141128
